FAERS Safety Report 10904506 (Version 1)
Quarter: 2015Q1

REPORT INFORMATION
  Report Type: Spontaneous
  Country: FR (occurrence: FR)
  Receive Date: 20150311
  Receipt Date: 20150311
  Transmission Date: 20150721
  Serious: Yes (Hospitalization)
  Sender: FDA-Public Use
  Company Number: FR-TEVA-515004ISR

PATIENT
  Age: 74 Year
  Sex: Female

DRUGS (5)
  1. VENLAFAXINE TEVA 75 [Suspect]
     Active Substance: VENLAFAXINE HYDROCHLORIDE
     Dosage: 2 TABLET DAILY; 15 DAYS AGO
  2. VENLAFAXINE TEVA 75 [Suspect]
     Active Substance: VENLAFAXINE HYDROCHLORIDE
     Indication: DEPRESSION
     Dosage: 37.5 MILLIGRAM DAILY; IN THE MORNING, 1 MONTH AGO
  3. SINEMET [Concomitant]
     Active Substance: CARBIDOPA\LEVODOPA
  4. STALEVO 100 [Concomitant]
     Indication: PARKINSON^S DISEASE
     Dosage: 4 TABLET DAILY; FOR YEARS
  5. STALEVO 100 [Concomitant]
     Dosage: 3 TABLET DAILY;
     Dates: start: 201406, end: 2014

REACTIONS (8)
  - Nausea [Recovered/Resolved]
  - Vomiting [Recovered/Resolved]
  - Paralysis [None]
  - Parkinsonism [Unknown]
  - Therapy cessation [Not Recovered/Not Resolved]
  - Tremor [None]
  - Tremor [Not Recovered/Not Resolved]
  - Abasia [None]

NARRATIVE: CASE EVENT DATE: 201406
